FAERS Safety Report 20414717 (Version 1)
Quarter: 2022Q1

REPORT INFORMATION
  Report Type: Other
  Country: None (occurrence: CZ)
  Receive Date: 20220202
  Receipt Date: 20220202
  Transmission Date: 20220424
  Serious: Yes (Other)
  Sender: FDA-Public Use
  Company Number: CZ-OrBion Pharmaceuticals Private Limited-2124515

PATIENT
  Age: 14 Year
  Sex: Male
  Weight: 37 kg

DRUGS (3)
  1. IBANDRONATE SODIUM [Suspect]
     Active Substance: IBANDRONATE SODIUM
     Indication: Osteogenesis imperfecta
     Route: 048
  2. CALCIUM [Concomitant]
     Active Substance: CALCIUM
     Route: 065
  3. CHOLECALCIFEROL [Concomitant]
     Active Substance: CHOLECALCIFEROL
     Route: 065

REACTIONS (2)
  - Leukopenia [Recovered/Resolved]
  - Off label use [Unknown]
